FAERS Safety Report 12786764 (Version 2)
Quarter: 2016Q3

REPORT INFORMATION
  Report Type: Spontaneous
  Country: US (occurrence: US)
  Receive Date: 20160927
  Receipt Date: 20160927
  Transmission Date: 20161109
  Serious: No
  Sender: FDA-Public Use
  Company Number: PHEH2016US024418

PATIENT
  Age: 46 Year
  Sex: Female
  Weight: 66.67 kg

DRUGS (4)
  1. FLUVOXAMINE [Suspect]
     Active Substance: FLUVOXAMINE
     Dosage: 300 MG, QD
     Route: 048
  2. KLONOPIN [Suspect]
     Active Substance: CLONAZEPAM
     Indication: ANXIETY
     Route: 065
  3. TEGRETOL [Suspect]
     Active Substance: CARBAMAZEPINE
     Indication: SEIZURE
     Route: 065
  4. FLUVOXAMINE [Suspect]
     Active Substance: FLUVOXAMINE
     Indication: OBSESSIVE-COMPULSIVE DISORDER
     Dosage: 250 MG, QD
     Route: 048

REACTIONS (7)
  - Gastritis [Unknown]
  - Back pain [Unknown]
  - Retching [Unknown]
  - Vomiting [Unknown]
  - Abdominal discomfort [Unknown]
  - Hepatic enzyme increased [Unknown]
  - Nausea [Unknown]

NARRATIVE: CASE EVENT DATE: 201609
